FAERS Safety Report 12179801 (Version 1)
Quarter: 2016Q1

REPORT INFORMATION
  Report Type: Spontaneous
  Country: US (occurrence: US)
  Receive Date: 20160315
  Receipt Date: 20160315
  Transmission Date: 20160526
  Serious: Yes (Death)
  Sender: FDA-Public Use
  Company Number: US-009507513-1603USA006313

PATIENT
  Sex: Female

DRUGS (2)
  1. GARCINIA [Suspect]
     Active Substance: DIETARY SUPPLEMENT
  2. SINGULAIR [Suspect]
     Active Substance: MONTELUKAST SODIUM
     Route: 048

REACTIONS (1)
  - Liver disorder [Fatal]
